FAERS Safety Report 9959185 (Version 2)
Quarter: 2014Q1

REPORT INFORMATION
  Report Type: Report from Study
  Country: US (occurrence: US)
  Receive Date: 20140305
  Receipt Date: 20140305
  Transmission Date: 20141002
  Serious: No
  Sender: FDA-Public Use
  Company Number: US-ABBVIE-13P-163-1097125-00

PATIENT
  Age: 25 Year
  Sex: Female

DRUGS (6)
  1. HUMIRA [Suspect]
     Indication: PSORIASIS
     Dates: start: 20130523, end: 20130523
  2. HUMIRA [Suspect]
     Dosage: DAY 8
     Dates: start: 20130531, end: 20130531
  3. HUMIRA [Suspect]
  4. MACROBID [Concomitant]
     Indication: PROPHYLAXIS URINARY TRACT INFECTION
  5. VALTREX [Concomitant]
     Indication: GENITAL HERPES
  6. NUVARING [Concomitant]
     Indication: CONTRACEPTION

REACTIONS (12)
  - Injection site warmth [Recovering/Resolving]
  - Injection site erythema [Recovering/Resolving]
  - Injection site pruritus [Recovering/Resolving]
  - Injection site induration [Recovering/Resolving]
  - Injection site rash [Recovering/Resolving]
  - Injection site swelling [Recovering/Resolving]
  - Injection site swelling [Recovering/Resolving]
  - Injection site extravasation [Recovering/Resolving]
  - Injection site erythema [Recovering/Resolving]
  - Injection site warmth [Recovering/Resolving]
  - Injection site induration [Recovering/Resolving]
  - Injection site pruritus [Recovering/Resolving]
